FAERS Safety Report 12993898 (Version 1)
Quarter: 2016Q4

REPORT INFORMATION
  Report Type: Report from Study
  Country: CA (occurrence: None)
  Receive Date: 20161129
  Receipt Date: 20161129
  Transmission Date: 20170207
  Serious: Yes (Hospitalization, Other)
  Sender: FDA-Public Use
  Company Number: A201606555

PATIENT
  Age: 46 Year
  Sex: Male
  Weight: 83.9 kg

DRUGS (11)
  1. DILAUDID [Concomitant]
     Active Substance: HYDROMORPHONE HYDROCHLORIDE
  2. TYLENOL EXTRA STRENGTH (PARACETAMOL) [Concomitant]
  3. PREDNISONE. [Concomitant]
     Active Substance: PREDNISONE
  4. VENLAFAXINE [Concomitant]
     Active Substance: VENLAFAXINE HYDROCHLORIDE
  5. FOLIC ACID. [Concomitant]
     Active Substance: FOLIC ACID
  6. ADVIL [Concomitant]
     Active Substance: IBUPROFEN
  7. PRADAX (DABIGATRAN ETEXILATE MESILATE) [Concomitant]
  8. MAGNESIUM [Concomitant]
     Active Substance: MAGNESIUM
  9. SOLIRIS [Suspect]
     Active Substance: ECULIZUMAB
     Indication: PAROXYSMAL NOCTURNAL HAEMOGLOBINURIA
     Route: 042
     Dates: start: 20100409, end: 20100428
  10. POTASSIUM [Concomitant]
     Active Substance: POTASSIUM
  11. CALCIUM/VITAMIN D (CALCIUM CARBONATE, ERGOCALCIFEROL) [Concomitant]

REACTIONS (9)
  - Abdominal pain [None]
  - Respiratory rate increased [None]
  - Infusion related reaction [None]
  - Pancreatitis [None]
  - Dyspnoea [None]
  - Blood pressure increased [None]
  - Heart rate increased [None]
  - Abdominal distension [None]
  - Fatigue [None]

NARRATIVE: CASE EVENT DATE: 2016
